FAERS Safety Report 10016626 (Version 2)
Quarter: 2014Q1

REPORT INFORMATION
  Report Type: Spontaneous
  Country: US (occurrence: US)
  Receive Date: 20140317
  Receipt Date: 20140317
  Transmission Date: 20141002
  Serious: No
  Sender: FDA-Public Use
  Company Number: US-ALLERGAN-1307572US

PATIENT
  Age: 23 Year
  Sex: Female

DRUGS (3)
  1. FML FORTE [Suspect]
     Indication: GIANT PAPILLARY CONJUNCTIVITIS
     Dosage: 2 GTT, BID
     Dates: start: 20130410, end: 20130424
  2. FML FORTE [Suspect]
     Dosage: 2 GTT, QID
     Dates: start: 20130403, end: 20130409
  3. VIGAMOX [Concomitant]
     Indication: PRODUCT USED FOR UNKNOWN INDICATION

REACTIONS (3)
  - Refraction disorder [Recovering/Resolving]
  - Astigmatism [Recovering/Resolving]
  - Vision blurred [Recovered/Resolved]
